FAERS Safety Report 4916153-2 (Version None)
Quarter: 2006Q1

REPORT INFORMATION
  Report Type: 
  Country: None (occurrence: None)
  Receive Date: 20060217
  Receipt Date: 20050930
  Transmission Date: 20060701
  Serious: Yes (Hospitalization, Disabling)
  Sender: FDA-Public Use
  Company Number: US-MERCK-0510USA02086

PATIENT
  Age: 54 Year
  Sex: Male
  Weight: 99 kg

DRUGS (2)
  1. VIOXX [Suspect]
     Indication: MONARTHRITIS
     Route: 048
     Dates: start: 20000101, end: 20030601
  2. TYLENOL [Concomitant]
     Route: 065

REACTIONS (4)
  - EMBOLISM [None]
  - HAEMORRHAGE [None]
  - PULMONARY EMBOLISM [None]
  - THROMBOSIS [None]
